FAERS Safety Report 6375117-5 (Version None)
Quarter: 2009Q3

REPORT INFORMATION
  Report Type: 
  Country: None (occurrence: None)
  Receive Date: 20090924
  Receipt Date: 20090911
  Transmission Date: 20100115
  Serious: Yes (Death)
  Sender: FDA-Public Use
  Company Number: NL-GENENTECH-290680

PATIENT
  Sex: Male

DRUGS (2)
  1. BEVACIZUMAB [Suspect]
     Indication: ACUTE MYELOID LEUKAEMIA
     Dosage: 650 MG, UNK
     Route: 042
     Dates: start: 20090824
  2. CYTARABINE [Suspect]
     Indication: ACUTE MYELOID LEUKAEMIA
     Dosage: 3250 MG, UNK
     Route: 042
     Dates: start: 20090824

REACTIONS (1)
  - SEPSIS [None]
